FAERS Safety Report 17084170 (Version 1)
Quarter: 2019Q4

REPORT INFORMATION
  Report Type: Spontaneous
  Country: IT (occurrence: IT)
  Receive Date: 20191127
  Receipt Date: 20191127
  Transmission Date: 20200122
  Serious: Yes (Life-Threatening)
  Sender: FDA-Public Use
  Company Number: IT-MYLANLABS-2019M1115553

PATIENT
  Age: 27 Year
  Sex: Female
  Weight: 60 kg

DRUGS (1)
  1. FROBEN [Suspect]
     Active Substance: FLURBIPROFEN
     Indication: OROPHARYNGEAL PAIN
     Dosage: 0.25 DOSAGE FORM, PRN
     Route: 048
     Dates: start: 20190623, end: 20190624

REACTIONS (2)
  - Palatal oedema [Recovering/Resolving]
  - Tonsillar hypertrophy [Recovering/Resolving]

NARRATIVE: CASE EVENT DATE: 20190624
